FAERS Safety Report 8289569-7 (Version None)
Quarter: 2012Q2

REPORT INFORMATION
  Report Type: 
  Country: None (occurrence: None)
  Receive Date: 20120417
  Receipt Date: 20120411
  Transmission Date: 20120825
  Serious: Yes (Other)
  Sender: FDA-Public Use
  Company Number: PHEH2012US007530

PATIENT
  Sex: Female
  Weight: 165 kg

DRUGS (7)
  1. OMEPRAZOLE [Concomitant]
     Dosage: 20 MG, QD
     Route: 048
  2. VITAMIN E [Concomitant]
     Dosage: UNK UKN, QD
     Route: 048
  3. TYLENOL (CAPLET) [Concomitant]
     Dosage: UNK UKN, PRN
     Route: 048
  4. GILENYA [Suspect]
     Indication: MULTIPLE SCLEROSIS
     Dosage: 0.5 MG, QD
     Route: 048
     Dates: start: 20120327, end: 20120331
  5. DETROL [Concomitant]
     Dosage: UNK UKN, QD
     Route: 048
  6. CALCIUM CARBONATE [Concomitant]
     Dosage: UNK UKN, QD
     Route: 048
  7. GILENYA [Suspect]
     Dosage: 0.5 MG, QOD
     Route: 048
     Dates: start: 20120409

REACTIONS (6)
  - PAIN IN EXTREMITY [None]
  - HEADACHE [None]
  - INAPPROPRIATE SCHEDULE OF DRUG ADMINISTRATION [None]
  - CARDIAC FAILURE [None]
  - BLOOD PRESSURE DECREASED [None]
  - HEART RATE DECREASED [None]
